FAERS Safety Report 7018032-6 (Version None)
Quarter: 2010Q3

REPORT INFORMATION
  Report Type: 
  Country: None (occurrence: None)
  Receive Date: 20100928
  Receipt Date: 20100917
  Transmission Date: 20110219
  Serious: Yes (Hospitalization)
  Sender: FDA-Public Use
  Company Number: PHHY2010US47704

PATIENT
  Sex: Female
  Weight: 76.9 kg

DRUGS (1)
  1. EXJADE [Suspect]
     Indication: IRON OVERLOAD
     Dosage: 3000 MG
     Route: 048
     Dates: start: 20090423

REACTIONS (2)
  - BLADDER DISORDER [None]
  - SPLENECTOMY [None]
